FAERS Safety Report 5104775-8 (Version None)
Quarter: 2006Q3

REPORT INFORMATION
  Report Type: 
  Country: None (occurrence: None)
  Receive Date: 20060914
  Receipt Date: 20050805
  Transmission Date: 20061208
  Serious: Yes (Other)
  Sender: FDA-Public Use
  Company Number: CH-ROCHE-413500

PATIENT
  Sex: Female
  Weight: 3.5 kg

DRUGS (1)
  1. ROACCUTAN GEL [Suspect]
     Indication: ACNE
     Dates: start: 20050404, end: 20050515

REACTIONS (2)
  - DRUG EXPOSURE DURING PREGNANCY [None]
  - NORMAL NEWBORN [None]
